FAERS Safety Report 8975362 (Version 2)
Quarter: 2013Q1

REPORT INFORMATION
  Report Type: Spontaneous
  Country: US (occurrence: US)
  Receive Date: 20121219
  Receipt Date: 20130213
  Transmission Date: 20140127
  Serious: Yes (Other)
  Sender: FDA-Public Use
  Company Number: PHEH2012US021151

PATIENT
  Sex: Female

DRUGS (1)
  1. AFINITOR [Suspect]
     Indication: BREAST CANCER FEMALE
     Route: 048
     Dates: start: 20121017

REACTIONS (6)
  - Lung disorder [Unknown]
  - White blood cell count increased [Unknown]
  - Lung infection [Unknown]
  - Mucosal inflammation [Unknown]
  - Pyrexia [Unknown]
  - Dyspnoea [Unknown]
